FAERS Safety Report 11450259 (Version 1)
Quarter: 2015Q3

REPORT INFORMATION
  Report Type: Spontaneous
  Country: US (occurrence: None)
  Receive Date: 20150902
  Receipt Date: 20150902
  Transmission Date: 20151125
  Serious: Yes (Life-Threatening, Hospitalization, Other)
  Sender: FDA-Public Use
  Company Number: None

PATIENT
  Age: 59 Year
  Sex: Male
  Weight: 112.4 kg

DRUGS (1)
  1. PIPERACILLIN/TAZOBACTAM [Suspect]
     Active Substance: PIPERACILLIN SODIUM\TAZOBACTAM SODIUM
     Indication: PNEUMONIA
     Dosage: 3.375 GM  ONCE  IV
     Route: 042
     Dates: start: 20150803, end: 20150803

REACTIONS (3)
  - Hypersensitivity [None]
  - Respiratory depression [None]
  - Angioedema [None]

NARRATIVE: CASE EVENT DATE: 20150803
